FAERS Safety Report 20715168 (Version 1)
Quarter: 2022Q2

REPORT INFORMATION
  Report Type: Spontaneous
  Country: HR (occurrence: None)
  Receive Date: 20220415
  Receipt Date: 20220415
  Transmission Date: 20220720
  Serious: Yes (Other)
  Sender: FDA-Public Use
  Company Number: 2022A141004

PATIENT
  Sex: Male

DRUGS (3)
  1. XIGDUO XR [Suspect]
     Active Substance: DAPAGLIFLOZIN PROPANEDIOL\METFORMIN HYDROCHLORIDE
     Dosage: DF= 5 MG/1,000 MG
     Route: 048
     Dates: start: 20220120, end: 20220120
  2. PANTOPRAZOLE SODIUM [Suspect]
     Active Substance: PANTOPRAZOLE SODIUM
     Dosage: DOSE: 7 TBL
     Route: 048
     Dates: start: 20220120, end: 20220120
  3. SIMVASTATIN [Suspect]
     Active Substance: SIMVASTATIN
     Dosage: DOSE: 9 TBL
     Route: 048
     Dates: start: 20220120, end: 20220120

REACTIONS (2)
  - Intentional overdose [Unknown]
  - Suicide attempt [Unknown]

NARRATIVE: CASE EVENT DATE: 20220120
